FAERS Safety Report 8830290 (Version 1)
Quarter: 2012Q4

REPORT INFORMATION
  Report Type: 
  Country: US (occurrence: US)
  Receive Date: 20121009
  Receipt Date: 20121009
  Transmission Date: 20130627
  Serious: No
  Sender: FDA-Public Use
  Company Number: US-MYLANLABS-2012S1014837

PATIENT
  Sex: Male

DRUGS (1)
  1. METOPROLOL SUCCINATE EXTENDED-RELEASE [Suspect]
     Indication: MYOCARDIAL INFARCTION

REACTIONS (1)
  - Hypersensitivity [Not Recovered/Not Resolved]
